FAERS Safety Report 9234047 (Version 1)
Quarter: 2013Q2

REPORT INFORMATION
  Report Type: Spontaneous
  Country: US (occurrence: US)
  Receive Date: 20130416
  Receipt Date: 20130416
  Transmission Date: 20140414
  Serious: No
  Sender: FDA-Public Use
  Company Number: US-JNJFOC-20130316507

PATIENT
  Age: 27 Year
  Sex: Female
  Weight: 67.9 kg

DRUGS (7)
  1. INVEGA SUSTENNA [Suspect]
     Indication: BIPOLAR DISORDER
     Route: 030
     Dates: start: 20130322
  2. RISPERDAL [Suspect]
     Indication: BIPOLAR DISORDER
     Route: 048
  3. LITHIUM [Concomitant]
  4. ZYPREXA [Concomitant]
     Route: 065
  5. LAMICTAL [Concomitant]
     Route: 065
  6. KLONOPIN [Concomitant]
     Route: 065
  7. SARNA [Concomitant]
     Route: 065

REACTIONS (3)
  - Rash [Recovering/Resolving]
  - Face oedema [Recovering/Resolving]
  - Oedema peripheral [Unknown]
